FAERS Safety Report 13425513 (Version 1)
Quarter: 2017Q2

REPORT INFORMATION
  Report Type: Report from Study
  Country: FR (occurrence: FR)
  Receive Date: 20170411
  Receipt Date: 20170411
  Transmission Date: 20170830
  Serious: Yes (Other)
  Sender: FDA-Public Use
  Company Number: FR-ROCHE-1915903

PATIENT

DRUGS (6)
  1. RIBAVIRIN. [Suspect]
     Active Substance: RIBAVIRIN
     Indication: HIV INFECTION
  2. DACLATASVIR. [Suspect]
     Active Substance: DACLATASVIR
     Indication: HEPATITIS C
     Route: 065
  3. DACLATASVIR. [Suspect]
     Active Substance: DACLATASVIR
     Indication: HIV INFECTION
  4. RIBAVIRIN. [Suspect]
     Active Substance: RIBAVIRIN
     Indication: HEPATITIS C
     Route: 065
  5. SOFOSBUVIR [Suspect]
     Active Substance: SOFOSBUVIR
     Indication: HEPATITIS C
     Route: 065
  6. SOFOSBUVIR [Suspect]
     Active Substance: SOFOSBUVIR
     Indication: HIV INFECTION

REACTIONS (18)
  - Ulcer haemorrhage [Unknown]
  - Pneumonia [Unknown]
  - Tibia fracture [Unknown]
  - Insomnia [Unknown]
  - Drug ineffective [Unknown]
  - Upper respiratory tract infection [Unknown]
  - Hypertension [Unknown]
  - Cell death [Unknown]
  - Bronchitis [Unknown]
  - Herpes zoster [Unknown]
  - Hepatocellular carcinoma [Unknown]
  - Hepatic encephalopathy [Unknown]
  - Anxiety [Unknown]
  - Tachycardia [Unknown]
  - Ascites [Unknown]
  - Transient ischaemic attack [Unknown]
  - Depression [Unknown]
  - Cardiac disorder [Unknown]
